FAERS Safety Report 9222718 (Version 1)
Quarter: 2013Q2

REPORT INFORMATION
  Report Type: Spontaneous
  Country: SE (occurrence: SE)
  Receive Date: 20130410
  Receipt Date: 20130410
  Transmission Date: 20140414
  Serious: Yes (Death, Hospitalization)
  Sender: FDA-Public Use
  Company Number: SE-ROCHE-1208502

PATIENT
  Age: 62 Year
  Sex: Male

DRUGS (7)
  1. METALYSE [Suspect]
     Indication: MYOCARDIAL INFARCTION
     Route: 065
     Dates: start: 20021010, end: 20021010
  2. KLEXANE [Suspect]
     Indication: MYOCARDIAL INFARCTION
     Route: 058
     Dates: start: 20021010, end: 20021010
  3. ZOCORD 20 MG [Suspect]
     Indication: MYOCARDIAL INFARCTION
     Route: 048
  4. TRIATEC [Concomitant]
  5. SELOKEN [Concomitant]
  6. TROMBYL [Concomitant]
  7. LANZO [Concomitant]

REACTIONS (4)
  - Pancreatitis [Unknown]
  - Hepatic haemorrhage [Unknown]
  - Large intestinal haemorrhage [Unknown]
  - Sepsis [Fatal]
